FAERS Safety Report 10170199 (Version 1)
Quarter: 2014Q2

REPORT INFORMATION
  Report Type: Spontaneous
  Country: US (occurrence: US)
  Receive Date: 20140513
  Receipt Date: 20140513
  Transmission Date: 20141212
  Serious: Yes (Other)
  Sender: FDA-Public Use
  Company Number: US-PFIZER INC-2014128894

PATIENT
  Age: 29 Year
  Sex: Male
  Weight: 105 kg

DRUGS (6)
  1. NEURONTIN [Suspect]
     Indication: SPINAL PAIN
     Dosage: 600 MG, 3X/DAY
     Route: 048
     Dates: start: 2009, end: 2011
  2. NEURONTIN [Suspect]
     Indication: NEURALGIA
  3. NORCO [Concomitant]
     Indication: PAIN
     Dosage: 5/325 MG, 2X/DAY
     Route: 048
  4. FLEXERIL [Concomitant]
     Indication: MUSCLE SPASMS
     Dosage: 5 MG, 2X/DAY
     Route: 048
  5. PROZAC [Concomitant]
     Indication: DEPRESSION
     Dosage: 10 MG, 1X/DAY
     Route: 048
  6. ATIVAN [Concomitant]
     Indication: ANXIETY
     Dosage: 1 MG, 4X/DAY
     Route: 060

REACTIONS (8)
  - Spinal cord compression [Unknown]
  - Intervertebral disc protrusion [Unknown]
  - Intervertebral disc injury [Unknown]
  - Muscle twitching [Unknown]
  - Spinal disorder [Unknown]
  - Neuralgia [Unknown]
  - Burning sensation [Unknown]
  - Drug ineffective for unapproved indication [Unknown]
